FAERS Safety Report 13185270 (Version 1)
Quarter: 2017Q1

REPORT INFORMATION
  Report Type: Spontaneous
  Country: FR (occurrence: FR)
  Receive Date: 20170203
  Receipt Date: 20170203
  Transmission Date: 20170428
  Serious: Yes (Hospitalization)
  Sender: FDA-Public Use
  Company Number: FR-PFIZER INC-2004020592

PATIENT
  Age: 44 Year
  Sex: Female

DRUGS (8)
  1. CARYOLYSINE 10MG [Suspect]
     Active Substance: MECHLORETHAMINE HYDROCHLORIDE
     Dosage: 10 MG, DAILY
     Route: 062
     Dates: start: 20040114
  2. CARYOLYSINE 10MG [Suspect]
     Active Substance: MECHLORETHAMINE HYDROCHLORIDE
     Dosage: 10 MG, DAILY
     Route: 062
     Dates: start: 20040115
  3. TAHOR [Suspect]
     Active Substance: ATORVASTATIN CALCIUM
     Indication: ILL-DEFINED DISORDER
     Dosage: 20 MG, DAILY
     Route: 048
     Dates: start: 20040113, end: 20040126
  4. MONOTILDIEM [Suspect]
     Active Substance: DILTIAZEM
     Indication: HYPERTENSION
     Dosage: 300 MG, DAILY
     Route: 048
     Dates: start: 20040113, end: 20040126
  5. CARYOLYSINE 10MG [Suspect]
     Active Substance: MECHLORETHAMINE HYDROCHLORIDE
     Indication: PSORIASIS
     Dosage: 10 MG, DAILY
     Route: 062
     Dates: start: 20040113
  6. CARYOLYSINE 10MG [Suspect]
     Active Substance: MECHLORETHAMINE HYDROCHLORIDE
     Dosage: 10 MG, DAILY
     Route: 062
     Dates: start: 20040119
  7. CARYOLYSINE 10MG [Suspect]
     Active Substance: MECHLORETHAMINE HYDROCHLORIDE
     Dosage: 10 MG, DAILY
     Route: 062
     Dates: start: 20040121, end: 20040121
  8. CARYOLYSINE 10MG [Suspect]
     Active Substance: MECHLORETHAMINE HYDROCHLORIDE
     Dosage: 10 MG, DAILY
     Route: 062
     Dates: start: 20040120

REACTIONS (1)
  - Toxic epidermal necrolysis [Recovered/Resolved]

NARRATIVE: CASE EVENT DATE: 20040121
